FAERS Safety Report 4760991-6 (Version None)
Quarter: 2005Q3

REPORT INFORMATION
  Report Type: 
  Country: None (occurrence: None)
  Receive Date: 20050901
  Receipt Date: 20050819
  Transmission Date: 20060218
  Serious: Yes (Other)
  Sender: FDA-Public Use
  Company Number: S05-USA-04059-01

PATIENT
  Sex: Male

DRUGS (1)
  1. LEXAPRO [Suspect]

REACTIONS (1)
  - MURDER [None]
